FAERS Safety Report 9606213 (Version 2)
Quarter: 2013Q4

REPORT INFORMATION
  Report Type: Spontaneous
  Country: US (occurrence: US)
  Receive Date: 20131008
  Receipt Date: 20131008
  Transmission Date: 20140711
  Serious: No
  Sender: FDA-Public Use
  Company Number: US-AMGEN-USASP2013041360

PATIENT
  Age: 70 Year
  Sex: Female
  Weight: 50.4 kg

DRUGS (7)
  1. PROLIA [Suspect]
     Indication: PRODUCT USED FOR UNKNOWN INDICATION
     Dosage: 60 MG, UNK
     Route: 058
     Dates: start: 20120723, end: 20130328
  2. PROLIA [Suspect]
     Dosage: UNK
  3. CALCIUM [Concomitant]
  4. VITAMIN D                          /00107901/ [Concomitant]
  5. IMIPRAMINE [Concomitant]
  6. VAGIFEM [Concomitant]
  7. ESTRACE [Concomitant]

REACTIONS (8)
  - Urinary tract infection [Recovered/Resolved]
  - Alopecia [Recovering/Resolving]
  - Nasopharyngitis [Unknown]
  - Muscle spasms [Recovering/Resolving]
  - Diarrhoea [Recovering/Resolving]
  - Nausea [Recovering/Resolving]
  - Abdominal pain upper [Recovering/Resolving]
  - Upper respiratory tract infection [Recovered/Resolved]
